FAERS Safety Report 7939217-8 (Version None)
Quarter: 2011Q4

REPORT INFORMATION
  Report Type: 
  Country: None (occurrence: None)
  Receive Date: 20111124
  Receipt Date: 20111116
  Transmission Date: 20120403
  Serious: No
  Sender: FDA-Public Use
  Company Number: US-JNJFOC-20111107266

PATIENT
  Sex: Female
  Weight: 136.08 kg

DRUGS (6)
  1. DURAGESIC-100 [Suspect]
     Indication: ARTHRITIS
     Dosage: 100MCG+50MCG
     Route: 062
     Dates: start: 20110901
  2. DURAGESIC-100 [Suspect]
     Indication: SPINAL OSTEOARTHRITIS
     Dosage: 100MCG+50MCG
     Route: 062
     Dates: start: 20110901
  3. DURAGESIC-100 [Suspect]
     Dosage: 100MCG+50MCG
     Route: 062
     Dates: start: 20110901
  4. DURAGESIC-100 [Suspect]
     Dosage: 100MCG+50MCG
     Route: 062
     Dates: start: 20110901
  5. DURAGESIC-100 [Suspect]
     Dosage: 100MCG+50MCG
     Route: 062
     Dates: start: 20110901
  6. DURAGESIC-100 [Suspect]
     Dosage: 100MCG+50MCG
     Route: 062
     Dates: start: 20110901

REACTIONS (4)
  - DRUG ADMINISTERED AT INAPPROPRIATE SITE [None]
  - HYPERHIDROSIS [None]
  - WRONG TECHNIQUE IN DRUG USAGE PROCESS [None]
  - PRODUCT ADHESION ISSUE [None]
